FAERS Safety Report 17553201 (Version 1)
Quarter: 2020Q1

REPORT INFORMATION
  Report Type: Spontaneous
  Country: US (occurrence: US)
  Receive Date: 20200317
  Receipt Date: 20200317
  Transmission Date: 20200409
  Serious: No
  Sender: FDA-Public Use
  Company Number: US-HISAMITSU-2019-US-020397

PATIENT
  Sex: Female

DRUGS (1)
  1. SALONPAS PAIN RELIEF [Suspect]
     Active Substance: MENTHOL\METHYL SALICYLATE
     Indication: ANALGESIC THERAPY
     Dosage: 1 PATCH ON KNEE FOR 3 HOURS
     Route: 061
     Dates: start: 20191024, end: 20191024

REACTIONS (2)
  - Application site erythema [Unknown]
  - Application site vesicles [Unknown]

NARRATIVE: CASE EVENT DATE: 20191024
